FAERS Safety Report 10166480 (Version 1)
Quarter: 2014Q2

REPORT INFORMATION
  Report Type: Spontaneous
  Country: US (occurrence: US)
  Receive Date: 20140512
  Receipt Date: 20140512
  Transmission Date: 20141212
  Serious: No
  Sender: FDA-Public Use
  Company Number: US-MYLANLABS-2014S1001848

PATIENT
  Sex: Female

DRUGS (2)
  1. MORPHINE SULFATE EXTENDED-RELEASE TABLETS [Suspect]
     Indication: PAIN
     Route: 048
     Dates: start: 2011, end: 2011
  2. PERCOCET [Concomitant]
     Dosage: 10/325MG
     Route: 048

REACTIONS (2)
  - Drug ineffective [Recovered/Resolved]
  - Pain [Recovered/Resolved]
